FAERS Safety Report 11966182 (Version 1)
Quarter: 2016Q1

REPORT INFORMATION
  Report Type: Spontaneous
  Country: None (occurrence: None)
  Receive Date: 20160126
  Receipt Date: 20160126
  Transmission Date: 20160526
  Serious: No
  Sender: FDA-Public Use
  Company Number: None

PATIENT
  Age: 68 Year
  Sex: Female

DRUGS (4)
  1. TOUJEO [Concomitant]
     Active Substance: INSULIN GLARGINE
  2. GLIMIPERIDE [Suspect]
     Active Substance: GLIMEPIRIDE
  3. VICTOZA [Concomitant]
     Active Substance: LIRAGLUTIDE
  4. GLIMIPERIDE [Concomitant]
     Active Substance: GLIMEPIRIDE

REACTIONS (1)
  - Renal disorder [None]
